FAERS Safety Report 9248369 (Version 1)
Quarter: 2013Q1

REPORT INFORMATION
  Report Type: Spontaneous
  Country: US (occurrence: None)
  Receive Date: 20130305
  Receipt Date: 20130305
  Transmission Date: 20140127
  Serious: Yes (Other)
  Sender: FDA-Public Use
  Company Number: 163-21880-12053477

PATIENT
  Age: 52 Year
  Sex: Male
  Weight: 98.88 kg

DRUGS (7)
  1. REVLIMID [Suspect]
     Indication: PLASMA CELL MYELOMA
     Dosage: 10 MG, QD X 21 DAYS, PO
     Route: 048
     Dates: start: 20110512, end: 20110727
  2. ACYCLOVIR ( ACICLOVIR) ( UNKNOWN) [Concomitant]
  3. FISH OIL ( FISH OIL) ( UNKNOWN) [Concomitant]
  4. MULTIVITAMINS ( MULTIVITAMINS) ( UNKNOWN) [Concomitant]
  5. TYLENOL ( PARACETAMOL) (UNKNOWN) [Concomitant]
  6. WARFARIN ( WARFARIN) [Concomitant]
  7. ZOMETA ( ZOLEDRONIC ACID) ( UNKNOWN) [Concomitant]

REACTIONS (1)
  - Deep vein thrombosis [None]
